FAERS Safety Report 9765074 (Version 1)
Quarter: 2013Q4

REPORT INFORMATION
  Report Type: Spontaneous
  Country: FR (occurrence: FR)
  Receive Date: 20131217
  Receipt Date: 20131217
  Transmission Date: 20140711
  Serious: Yes (Hospitalization)
  Sender: FDA-Public Use
  Company Number: FR-SA-2013SA127965

PATIENT
  Age: 63 Year
  Sex: Male

DRUGS (12)
  1. ZOLPIDEM [Suspect]
     Indication: PRODUCT USED FOR UNKNOWN INDICATION
     Route: 048
     Dates: start: 20120618, end: 20120704
  2. PYOSTACINE [Suspect]
     Indication: PRODUCT USED FOR UNKNOWN INDICATION
     Dosage: FREQUENCY: 6 TIMES A DAY?STRENGTH: 500 MG
     Route: 048
     Dates: start: 20120607, end: 20120704
  3. VASTAREL [Suspect]
     Indication: PRODUCT USED FOR UNKNOWN INDICATION
     Route: 048
     Dates: start: 20120612, end: 20120704
  4. PIPERACILLIN/TAZOBACTAM [Suspect]
     Indication: PRODUCT USED FOR UNKNOWN INDICATION
     Route: 042
     Dates: start: 20120607, end: 20120704
  5. VANCOMYCIN [Suspect]
     Indication: PRODUCT USED FOR UNKNOWN INDICATION
     Dosage: FREQUENCY: 6 TIMES DAILY
     Route: 042
     Dates: start: 20120607, end: 20120704
  6. SEROPLEX [Concomitant]
     Route: 048
     Dates: start: 20120619, end: 20120628
  7. TERCIAN [Concomitant]
     Route: 048
     Dates: start: 20120620, end: 20120625
  8. BISOCE [Concomitant]
     Dosage: STRENGTH: 2.5 MG
     Route: 048
  9. DIGOXINE NATIVELLE [Concomitant]
     Dosage: STRENGTH: 0.25 MG
     Route: 048
  10. ALDACTONE [Concomitant]
     Dosage: STRENGTH: 25 MG
     Route: 048
  11. FUROSEMIDE [Concomitant]
     Route: 048
  12. SINTROM [Concomitant]
     Dosage: STRENGTH: 4 MG
     Route: 048

REACTIONS (3)
  - Toxic skin eruption [Recovered/Resolved]
  - Eosinophilia [Recovered/Resolved]
  - Thrombocytopenia [Recovered/Resolved]
